FAERS Safety Report 8469254-9 (Version None)
Quarter: 2012Q2

REPORT INFORMATION
  Report Type: 
  Country: None (occurrence: None)
  Receive Date: 20120626
  Receipt Date: 20120619
  Transmission Date: 20120825
  Serious: Yes (Hospitalization)
  Sender: FDA-Public Use
  Company Number: CA-UCBSA-050201

PATIENT
  Age: 65 Year
  Sex: Female
  Weight: 66.6 kg

DRUGS (11)
  1. PREDNISONE [Concomitant]
     Indication: RHEUMATOID ARTHRITIS
     Route: 048
  2. ARAVA [Concomitant]
     Indication: RHEUMATOID ARTHRITIS
     Route: 048
  3. OXYCONTIN [Concomitant]
     Indication: PAIN
     Route: 048
  4. PANTOPRAZOLE [Concomitant]
  5. LORAZEPAM [Concomitant]
     Dosage: DOSE 1 MG
  6. AMLODIPINE [Concomitant]
  7. CIMZIA [Suspect]
     Indication: RHEUMATOID ARTHRITIS
     Dosage: 400 MG WKS 0-2-4 THEN 200 MG
     Route: 058
     Dates: start: 20110831
  8. OXYCODONE HCL [Concomitant]
     Indication: PAIN
  9. PERCOCET [Concomitant]
  10. TRAZODONE HCL [Concomitant]
  11. BISOPROLOL FUMARATE [Concomitant]

REACTIONS (4)
  - BACK DISORDER [None]
  - PNEUMONIA [None]
  - INFECTION [None]
  - SKIN ULCER [None]
